FAERS Safety Report 21634885 (Version 1)
Quarter: 2022Q4

REPORT INFORMATION
  Report Type: Spontaneous
  Country: IN (occurrence: IN)
  Receive Date: 20221123
  Receipt Date: 20221123
  Transmission Date: 20230112
  Serious: Yes (Other)
  Sender: FDA-Public Use
  Company Number: IN-STERISCIENCE B.V.-2022-ST-000023

PATIENT

DRUGS (10)
  1. BUPIVACAINE [Suspect]
     Active Substance: BUPIVACAINE
     Indication: Delivery
     Dosage: UNKNOWN
     Route: 064
  2. BUPIVACAINE [Suspect]
     Active Substance: BUPIVACAINE
     Indication: Product used for unknown indication
  3. FUROSEMIDE [Suspect]
     Active Substance: FUROSEMIDE
     Indication: Peripartum cardiomyopathy
     Dosage: UNK
     Route: 064
  4. METHYLDOPA [Suspect]
     Active Substance: METHYLDOPA
     Indication: Peripartum cardiomyopathy
     Dosage: UNK
     Route: 064
  5. FENTANYL [Suspect]
     Active Substance: FENTANYL
     Indication: Delivery
     Dosage: PATIENT^S MOTHER DOSE WAS FENTANYL 25?G
     Route: 064
  6. FENTANYL [Suspect]
     Active Substance: FENTANYL
     Indication: Product used for unknown indication
  7. LACTATED RINGERS SOLUTION [Suspect]
     Active Substance: CALCIUM CHLORIDE\POTASSIUM CHLORIDE\SODIUM CHLORIDE\SODIUM LACTATE
     Indication: Delivery
     Dosage: PATIENT^S MOTHER WAS ADMINISTERED RINGER^S LACTATE INFUSION
     Route: 064
  8. LACTATED RINGERS SOLUTION [Suspect]
     Active Substance: CALCIUM CHLORIDE\POTASSIUM CHLORIDE\SODIUM CHLORIDE\SODIUM LACTATE
     Indication: Product used for unknown indication
  9. SODIUM CHLORIDE [Suspect]
     Active Substance: SODIUM CHLORIDE
     Indication: Product used for unknown indication
     Dosage: PATIENT^S MOTHER DOSE WAS 8ML ISOTONIC SODIUM CHLORIDE (NORMAL SALINE)
     Route: 064
  10. SODIUM CHLORIDE [Suspect]
     Active Substance: SODIUM CHLORIDE
     Indication: Delivery

REACTIONS (2)
  - Premature baby [Unknown]
  - Foetal exposure during delivery [Unknown]
